FAERS Safety Report 24329229 (Version 3)
Quarter: 2025Q1

REPORT INFORMATION
  Report Type: Spontaneous
  Country: JP (occurrence: JP)
  Receive Date: 20240917
  Receipt Date: 20250123
  Transmission Date: 20250409
  Serious: Yes (Other)
  Sender: MERCK
  Company Number: JP-MSD-2409JPN001461J

PATIENT
  Age: 63 Year
  Sex: Female

DRUGS (1)
  1. KEYTRUDA [Suspect]
     Active Substance: PEMBROLIZUMAB
     Indication: Small cell lung cancer extensive stage
     Route: 065

REACTIONS (6)
  - Hallucination [Recovering/Resolving]
  - Altered state of consciousness [Recovering/Resolving]
  - Cerebellar ataxia [Recovering/Resolving]
  - Autonomic nervous system imbalance [Recovering/Resolving]
  - Hypoaesthesia [Unknown]
  - Product use in unapproved indication [Unknown]
